APPROVED DRUG PRODUCT: STEGLATRO
Active Ingredient: ERTUGLIFLOZIN
Strength: 5MG
Dosage Form/Route: TABLET;ORAL
Application: N209803 | Product #001
Applicant: MERCK SHARP AND DOHME LLC A SUB OF MERCK AND CO INC
Approved: Dec 19, 2017 | RLD: Yes | RS: No | Type: RX

PATENTS:
Patent 8080580 | Expires: Jul 13, 2030